FAERS Safety Report 7782523-0 (Version None)
Quarter: 2011Q3

REPORT INFORMATION
  Report Type: 
  Country: None (occurrence: None)
  Receive Date: 20110928
  Receipt Date: 20110915
  Transmission Date: 20111222
  Serious: Yes (Hospitalization)
  Sender: FDA-Public Use
  Company Number: GB-ELI_LILLY_AND_COMPANY-GB201108001405

PATIENT
  Sex: Male
  Weight: 94.6 kg

DRUGS (4)
  1. WARFARIN SODIUM [Concomitant]
  2. OLANZAPINE [Suspect]
     Indication: BIPOLAR DISORDER
     Dosage: 300 MG, EVERY 2 WEEKS
     Route: 030
     Dates: start: 20110711
  3. PERINDOPRIL ERBUMINE [Concomitant]
     Dosage: 2 MG, UNK
     Route: 048
  4. ACETAMINOPHEN AND CODEINE PHOSPHATE [Concomitant]
     Dosage: 500 MG, 8 TABS DAILY
     Route: 048

REACTIONS (2)
  - BIPOLAR DISORDER [None]
  - DRUG INEFFECTIVE [None]
